FAERS Safety Report 8460631-9 (Version None)
Quarter: 2012Q2

REPORT INFORMATION
  Report Type: 
  Country: None (occurrence: None)
  Receive Date: 20120622
  Receipt Date: 20120619
  Transmission Date: 20120825
  Serious: Yes (Other)
  Sender: FDA-Public Use
  Company Number: CA-ROCHE-1017476

PATIENT
  Sex: Female
  Weight: 69 kg

DRUGS (7)
  1. SYMBICORT [Concomitant]
     Route: 065
  2. THEO-DUR [Concomitant]
     Route: 065
  3. CLARITHROMYCIN [Concomitant]
     Route: 065
  4. XOLAIR [Suspect]
     Indication: ASTHMA
     Route: 058
     Dates: start: 20051005
  5. NASONEX [Concomitant]
     Route: 065
  6. XOLAIR [Suspect]
     Dates: start: 20100303
  7. FLOVENT [Concomitant]
     Route: 065

REACTIONS (13)
  - BLOOD PRESSURE INCREASED [None]
  - NASAL POLYPS [None]
  - SCIATICA [None]
  - GAIT DISTURBANCE [None]
  - BACK PAIN [None]
  - NASOPHARYNGITIS [None]
  - NASAL CONGESTION [None]
  - RHINORRHOEA [None]
  - PHARYNGITIS [None]
  - DYSPNOEA EXERTIONAL [None]
  - OROPHARYNGEAL PAIN [None]
  - GOUT [None]
  - PAIN IN EXTREMITY [None]
